FAERS Safety Report 5423358-3 (Version None)
Quarter: 2007Q3

REPORT INFORMATION
  Report Type: 
  Country: None (occurrence: None)
  Receive Date: 20070727
  Receipt Date: 20070626
  Transmission Date: 20080115
  Serious: No
  Sender: FDA-Public Use
  Company Number: 265338

PATIENT
  Sex: Male

DRUGS (4)
  1. LEVEMIR [Suspect]
     Indication: DIABETES MELLITUS
     Dosage: 25 IU, BID, SUBCUTANEOUS
     Route: 058
  2. NOVOLOG [Suspect]
     Indication: DIABETES MELLITUS
     Dosage: 2-3 IU, BID, SUBCUTANEOUS, 25 IU, SINGLE, SUBCUTANEOUS,
     Route: 058
     Dates: end: 20070625
  3. NOVOLOG [Suspect]
     Indication: DIABETES MELLITUS
     Dosage: 2-3 IU, BID, SUBCUTANEOUS, 25 IU, SINGLE, SUBCUTANEOUS,
     Route: 058
     Dates: start: 20070626, end: 20070626
  4. NOVOLOG [Suspect]
     Indication: DIABETES MELLITUS
     Dosage: 2-3 IU, BID, SUBCUTANEOUS, 25 IU, SINGLE, SUBCUTANEOUS,
     Route: 058
     Dates: start: 20070626

REACTIONS (3)
  - BLOOD GLUCOSE FLUCTUATION [None]
  - INCORRECT DOSE ADMINISTERED [None]
  - WRONG DRUG ADMINISTERED [None]
